FAERS Safety Report 9409127 (Version 4)
Quarter: 2013Q4

REPORT INFORMATION
  Report Type: Spontaneous
  Country: US (occurrence: US)
  Receive Date: 20130719
  Receipt Date: 20131203
  Transmission Date: 20140711
  Serious: Yes (Hospitalization)
  Sender: FDA-Public Use
  Company Number: US-JNJFOC-20130708334

PATIENT
  Age: 43 Year
  Sex: Female
  Weight: 122.47 kg

DRUGS (7)
  1. SIMPONI [Suspect]
     Indication: PSORIASIS
     Route: 058
     Dates: start: 20130611
  2. SIMPONI [Suspect]
     Indication: PSORIASIS
     Route: 058
     Dates: start: 20130711
  3. SIMPONI [Suspect]
     Indication: RHEUMATOID ARTHRITIS
     Route: 058
     Dates: start: 20130711
  4. SIMPONI [Suspect]
     Indication: RHEUMATOID ARTHRITIS
     Route: 058
     Dates: start: 20130611
  5. MELOXICAM [Concomitant]
     Indication: INFLAMMATION
     Route: 065
     Dates: start: 20130311
  6. LISINOPRIL [Concomitant]
     Indication: HYPERTENSION
     Dosage: 2 YEARS
     Route: 048
     Dates: start: 2010
  7. SYNTHROID [Concomitant]
     Indication: HYPOTHYROIDISM
     Dosage: 15+ YEARS
     Route: 048
     Dates: start: 2003

REACTIONS (4)
  - Pulmonary embolism [Recovering/Resolving]
  - Device malfunction [Recovered/Resolved]
  - Arthritis [Recovered/Resolved]
  - Drug dose omission [Recovered/Resolved]
